FAERS Safety Report 18324292 (Version 2)
Quarter: 2020Q4

REPORT INFORMATION
  Report Type: Report from Study
  Country: US (occurrence: US)
  Receive Date: 20200928
  Receipt Date: 20201019
  Transmission Date: 20210113
  Serious: Yes (Hospitalization)
  Sender: FDA-Public Use
  Company Number: US-EXELIXIS-CABO-20033165

PATIENT
  Age: 76 Year
  Sex: Female

DRUGS (2)
  1. CABOMETYX [Suspect]
     Active Substance: CABOZANTINIB S-MALATE
     Indication: UTERINE CANCER
  2. CABOMETYX [Suspect]
     Active Substance: CABOZANTINIB S-MALATE
     Indication: MALIGNANT NEOPLASM OF RENAL PELVIS
     Dosage: 60 MG, QD
     Route: 048
     Dates: start: 20200617

REACTIONS (11)
  - Diarrhoea [Recovered/Resolved]
  - Disorientation [Unknown]
  - Muscle spasms [Not Recovered/Not Resolved]
  - Off label use [Unknown]
  - Stomatitis [Not Recovered/Not Resolved]
  - Palmar-plantar erythrodysaesthesia syndrome [Not Recovered/Not Resolved]
  - Syncope [Recovered/Resolved]
  - Atrial fibrillation [Not Recovered/Not Resolved]
  - Oral pain [Unknown]
  - Constipation [Recovered/Resolved]
  - Vomiting [Unknown]

NARRATIVE: CASE EVENT DATE: 20200917
